FAERS Safety Report 9512772 (Version 1)
Quarter: 2013Q3

REPORT INFORMATION
  Report Type: Spontaneous
  Country: GB (occurrence: GB)
  Receive Date: 20130910
  Receipt Date: 20130910
  Transmission Date: 20140515
  Serious: Yes (Hospitalization)
  Sender: FDA-Public Use
  Company Number: GB-B.I. PHARMACEUTICALS,INC./RIDGEFIELD-2013-BI-27625UK

PATIENT
  Age: 64 Year
  Sex: Male

DRUGS (2)
  1. SPIRIVA [Suspect]
  2. ATORVASTATIN [Concomitant]

REACTIONS (8)
  - Blood homocysteine increased [Unknown]
  - C-reactive protein increased [Unknown]
  - Red blood cell sedimentation rate increased [Unknown]
  - Inflammatory marker increased [Unknown]
  - Polyarteritis nodosa [Unknown]
  - Kidney infection [Unknown]
  - Dyspnoea [Unknown]
  - Headache [Unknown]
